FAERS Safety Report 11170473 (Version 2)
Quarter: 2015Q3

REPORT INFORMATION
  Report Type: Spontaneous
  Country: US (occurrence: US)
  Receive Date: 20150608
  Receipt Date: 20150804
  Transmission Date: 20151125
  Serious: Yes (Life-Threatening, Hospitalization)
  Sender: FDA-Public Use
  Company Number: US-BAYER-2015-307707

PATIENT
  Age: 32 Year
  Sex: Female
  Weight: 56.69 kg

DRUGS (2)
  1. HYDROCHLOROTHIAZIDE. [Concomitant]
     Active Substance: HYDROCHLOROTHIAZIDE
     Dosage: UNK
     Dates: start: 201103
  2. MIRENA [Suspect]
     Active Substance: LEVONORGESTREL
     Indication: CONTRACEPTION
     Dosage: 20 MCG/24HR, CONT
     Route: 015
     Dates: start: 20110330, end: 20120207

REACTIONS (5)
  - Uterine perforation [None]
  - Injury [None]
  - Pain [None]
  - General physical health deterioration [None]
  - Device issue [None]

NARRATIVE: CASE EVENT DATE: 201108
